FAERS Safety Report 19078981 (Version 1)
Quarter: 2021Q1

REPORT INFORMATION
  Report Type: Spontaneous
  Country: ES (occurrence: ES)
  Receive Date: 20210331
  Receipt Date: 20210331
  Transmission Date: 20210420
  Serious: Yes (Other)
  Sender: FDA-Public Use
  Company Number: ES-VALIDUS PHARMACEUTICALS LLC-ES-2021VAL000385

PATIENT
  Age: 38 Year
  Sex: Female

DRUGS (12)
  1. PETHIDINE HYDROCHLORIDE [Suspect]
     Active Substance: MEPERIDINE HYDROCHLORIDE
     Indication: NEPHRITIC SYNDROME
  2. PARACETAMOL [Suspect]
     Active Substance: ACETAMINOPHEN
     Indication: RENAL COLIC
     Dosage: UNK
     Route: 042
  3. METAMIZOLE SODIUM [Suspect]
     Active Substance: METAMIZOLE SODIUM
     Indication: RENAL COLIC
     Dosage: UNK
     Route: 042
  4. METAMIZOLE SODIUM [Suspect]
     Active Substance: METAMIZOLE SODIUM
     Indication: NEPHRITIC SYNDROME
  5. PARACETAMOL [Suspect]
     Active Substance: ACETAMINOPHEN
     Indication: NEPHRITIC SYNDROME
  6. DICLOFENAC                         /00372302/ [Suspect]
     Active Substance: DICLOFENAC
     Indication: RENAL COLIC
  7. BUSCOPAN [Suspect]
     Active Substance: BUTYLSCOPOLAMINE BROMIDE
     Indication: NEPHRITIC SYNDROME
     Dosage: UNK
     Route: 042
  8. BUSCOPAN [Suspect]
     Active Substance: BUTYLSCOPOLAMINE BROMIDE
     Indication: RENAL COLIC
  9. PETHIDINE HYDROCHLORIDE [Suspect]
     Active Substance: MEPERIDINE HYDROCHLORIDE
     Indication: RENAL COLIC
     Dosage: UNK
     Route: 065
  10. DIAZEPAM. [Suspect]
     Active Substance: DIAZEPAM
     Indication: NEPHRITIC SYNDROME
  11. DICLOFENAC                         /00372302/ [Suspect]
     Active Substance: DICLOFENAC
     Indication: NEPHRITIC SYNDROME
     Dosage: 50 MG, Q12H
     Route: 030
  12. DIAZEPAM. [Suspect]
     Active Substance: DIAZEPAM
     Indication: RENAL COLIC
     Dosage: UNK
     Route: 042

REACTIONS (2)
  - Exposure during pregnancy [Unknown]
  - Oligohydramnios [Recovered/Resolved]
